FAERS Safety Report 18881397 (Version 1)
Quarter: 2021Q1

REPORT INFORMATION
  Report Type: Report from Study
  Country: US (occurrence: US)
  Receive Date: 20210211
  Receipt Date: 20210211
  Transmission Date: 20210420
  Serious: Yes (Hospitalization)
  Sender: FDA-Public Use
  Company Number: US-TAKEDA-US201931541

PATIENT
  Age: 16 Year
  Sex: Male
  Weight: 107.48 kg

DRUGS (7)
  1. IDURSULFASE [Suspect]
     Active Substance: IDURSULFASE
     Indication: MUCOPOLYSACCHARIDOSIS II
     Dosage: 54 MILLIGRAM, 1X/WEEK
     Route: 042
     Dates: start: 20100330
  2. IDURSULFASE [Suspect]
     Active Substance: IDURSULFASE
     Indication: MUCOPOLYSACCHARIDOSIS
     Dosage: 54 MILLIGRAM, 1X/WEEK
     Route: 042
     Dates: start: 20100329
  3. IDURSULFASE [Suspect]
     Active Substance: IDURSULFASE
     Dosage: 54 MILLIGRAM, 1X/WEEK
     Route: 042
     Dates: start: 20100331
  4. ADVAIR HFA [Concomitant]
     Active Substance: FLUTICASONE PROPIONATE\SALMETEROL XINAFOATE
     Indication: ASTHMA
     Dosage: UNK
  5. CLARITIN [Concomitant]
     Active Substance: LORATADINE
     Indication: ASTHMA
     Dosage: UNK
  6. ZIPRASIDONE. [Concomitant]
     Active Substance: ZIPRASIDONE
     Dosage: 80 MILLIGRAM, BID
  7. SINGULAIR [Concomitant]
     Active Substance: MONTELUKAST SODIUM
     Indication: ASTHMA
     Dosage: UNK

REACTIONS (4)
  - Weight increased [Unknown]
  - COVID-19 [Unknown]
  - Poor venous access [Unknown]
  - Product dose omission issue [Unknown]

NARRATIVE: CASE EVENT DATE: 20201123
